FAERS Safety Report 5529765-2 (Version None)
Quarter: 2007Q4

REPORT INFORMATION
  Report Type: 
  Country: None (occurrence: None)
  Receive Date: 20071127
  Receipt Date: 20071119
  Transmission Date: 20080405
  Serious: Yes (Life-Threatening, Hospitalization)
  Sender: FDA-Public Use
  Company Number: WAES 0711USA03953

PATIENT

DRUGS (1)
  1. EMEND [Suspect]
     Indication: PROPHYLACTIC CHEMOTHERAPY
     Dosage: PO
     Route: 048

REACTIONS (2)
  - SKIN INFECTION [None]
  - SMALL INTESTINAL OBSTRUCTION [None]
